FAERS Safety Report 4548976-6 (Version None)
Quarter: 2005Q1

REPORT INFORMATION
  Report Type: 
  Country: None (occurrence: None)
  Receive Date: 20050110
  Receipt Date: 20041029
  Transmission Date: 20050727
  Serious: No
  Sender: FDA-Public Use
  Company Number: US-MERCK-0411USA00065

PATIENT
  Age: 42 Year
  Sex: Female
  Weight: 103 kg

DRUGS (3)
  1. VIOXX [Suspect]
     Indication: ARTHRITIS
     Route: 048
     Dates: start: 20000101, end: 20040101
  2. GLUCAGON [Concomitant]
     Route: 065
  3. FOLIC ACID [Concomitant]
     Indication: PYRUVATE KINASE DECREASED
     Route: 048

REACTIONS (2)
  - CHEST PAIN [None]
  - OEDEMA [None]
